FAERS Safety Report 5398987-6 (Version None)
Quarter: 2007Q3

REPORT INFORMATION
  Report Type: 
  Country: None (occurrence: None)
  Receive Date: 20070727
  Receipt Date: 20070713
  Transmission Date: 20080115
  Serious: Yes (Hospitalization, Other)
  Sender: FDA-Public Use
  Company Number: US-ELI_LILLY_AND_COMPANY-US200704004924

PATIENT
  Age: 84 Year
  Sex: Female
  Weight: 49.886 kg

DRUGS (5)
  1. OMEPRAZOLE [Concomitant]
     Indication: ABDOMINAL DISCOMFORT
     Dosage: 30 MG, DAILY (1/D)
  2. ENSURE                             /00472201/ [Concomitant]
  3. PROZAC [Suspect]
     Indication: DEPRESSION
     Dosage: 20 MG, DAILY (1/D)
     Dates: start: 20070201
  4. PROZAC [Suspect]
     Dosage: 20 MG, DAILY (1/D)
     Route: 048
     Dates: end: 20050101
  5. CYMBALTA [Suspect]
     Indication: PAIN
     Dosage: 30 MG, DAILY (1/D)
     Dates: start: 20050101, end: 20070201

REACTIONS (12)
  - AGEUSIA [None]
  - ANOREXIA [None]
  - DEPRESSED MOOD [None]
  - DIZZINESS [None]
  - DRUG ABUSER [None]
  - FALL [None]
  - HERPES ZOSTER [None]
  - HIP FRACTURE [None]
  - IMMUNE SYSTEM DISORDER [None]
  - NAUSEA [None]
  - ULCER [None]
  - WEIGHT DECREASED [None]
